FAERS Safety Report 5565213-4 (Version None)
Quarter: 2007Q4

REPORT INFORMATION
  Report Type: 
  Country: None (occurrence: None)
  Receive Date: 20071218
  Receipt Date: 20071211
  Transmission Date: 20080405
  Serious: Yes (Hospitalization)
  Sender: FDA-Public Use
  Company Number: FR-AVENTIS-200713988FR

PATIENT
  Age: 78 Year
  Sex: Female

DRUGS (7)
  1. KETEK [Suspect]
     Indication: SINUSITIS
     Route: 048
     Dates: start: 20070820, end: 20070828
  2. SIMVASTATIN [Concomitant]
     Route: 048
     Dates: end: 20070828
  3. CELESTENE                          /00008501/ [Concomitant]
     Indication: SINUSITIS
     Dates: start: 20070820
  4. TEGRETOL [Concomitant]
  5. ALDALIX [Concomitant]
     Dates: end: 20070828
  6. SECTRAL [Concomitant]
  7. PLAVIX [Concomitant]

REACTIONS (5)
  - ARRHYTHMIA [None]
  - ELECTROCARDIOGRAM QT PROLONGED [None]
  - LOSS OF CONSCIOUSNESS [None]
  - MALAISE [None]
  - MEDICATION ERROR [None]
